FAERS Safety Report 5221641-8 (Version None)
Quarter: 2007Q1

REPORT INFORMATION
  Report Type: 
  Country: None (occurrence: None)
  Receive Date: 20070129
  Receipt Date: 20070116
  Transmission Date: 20070707
  Serious: Yes (Hospitalization)
  Sender: FDA-Public Use
  Company Number: PHRM2007FR00545

PATIENT
  Age: 71 Year
  Sex: Female

DRUGS (2)
  1. ZOMETA [Suspect]
     Indication: METASTASES TO BONE
     Dates: start: 20020128, end: 20031001
  2. AREDIA [Suspect]
     Indication: METASTASES TO BONE
     Dosage: UNK, UNK
     Dates: start: 20020301, end: 20020601

REACTIONS (5)
  - INDURATION [None]
  - JAW DISORDER [None]
  - OSTEITIS [None]
  - PAIN IN JAW [None]
  - SEQUESTRECTOMY [None]
